FAERS Safety Report 9330199 (Version 1)
Quarter: 2013Q2

REPORT INFORMATION
  Report Type: Spontaneous
  Country: US (occurrence: US)
  Receive Date: 20130604
  Receipt Date: 20130604
  Transmission Date: 20140414
  Serious: Yes (Other)
  Sender: FDA-Public Use
  Company Number: US-PERRIGO-13US005731

PATIENT
  Age: 61 Year
  Sex: Female
  Weight: 86.17 kg

DRUGS (1)
  1. ACETAMINOPHEN-ASPIRIN-CAFFEINE 374 [Suspect]
     Indication: HEADACHE
     Dosage: 4 TABLETS INITIALLY; FOLLOWED BY APPROX 10-2 TABLET DOSES
     Route: 048
     Dates: start: 201305, end: 201305

REACTIONS (4)
  - Hallucination [Not Recovered/Not Resolved]
  - Intentional overdose [Unknown]
  - Personality change [Not Recovered/Not Resolved]
  - Off label use [Recovered/Resolved]
